FAERS Safety Report 21445939 (Version 1)
Quarter: 2022Q4

REPORT INFORMATION
  Report Type: Spontaneous
  Country: IN (occurrence: IN)
  Receive Date: 20221012
  Receipt Date: 20221012
  Transmission Date: 20230113
  Serious: Yes (Hospitalization, Other)
  Sender: FDA-Public Use
  Company Number: IN-PFIZER INC-PV202200074452

PATIENT
  Age: 58 Year
  Sex: Male

DRUGS (5)
  1. METHYLPREDNISOLONE [Suspect]
     Active Substance: METHYLPREDNISOLONE
     Indication: Rheumatoid arthritis
     Dosage: 40 MG, DAILY (TWO DIVIDED DOSES)
     Route: 048
  2. METHYLPREDNISOLONE [Suspect]
     Active Substance: METHYLPREDNISOLONE
     Indication: Pain
     Dosage: 20 MG, DAILY
     Route: 048
  3. METHYLPREDNISOLONE [Suspect]
     Active Substance: METHYLPREDNISOLONE
     Indication: Joint swelling
     Dosage: 10 MG, DAILY
     Route: 048
  4. AMPHOTERICIN B [Concomitant]
     Active Substance: AMPHOTERICIN B
     Indication: Antifungal prophylaxis
     Dosage: UNK
  5. AZTREONAM [Concomitant]
     Active Substance: AZTREONAM
     Dosage: UNK

REACTIONS (2)
  - Strongyloidiasis [Recovering/Resolving]
  - Ascariasis [Recovering/Resolving]
